FAERS Safety Report 11938043 (Version 1)
Quarter: 2016Q1

REPORT INFORMATION
  Report Type: Spontaneous
  Country: US (occurrence: None)
  Receive Date: 20160120
  Receipt Date: 20160120
  Transmission Date: 20160526
  Serious: Yes (Hospitalization)
  Sender: FDA-Public Use
  Company Number: None

PATIENT
  Age: 78 Year
  Sex: Female
  Weight: 46.7 kg

DRUGS (10)
  1. BENZONATATE (TESSALON PERLES 100 MG ORAL CAPSULE) [Concomitant]
  2. FLUTICASONE-SALMETEROL (ADVAIR HFA 115 MCG-21 MCG/INH INHALATION AEROSOL) [Concomitant]
  3. TARCEVA [Suspect]
     Active Substance: ERLOTINIB HYDROCHLORIDE
     Indication: LUNG CANCER METASTATIC
     Route: 048
     Dates: start: 20060602
  4. BRIMONIDINE OPHTHALMIC (BRIMONIDINE 0.15% OPHTHALMIC SOLUTION) [Concomitant]
  5. ALBUTEROL (ALBUTEROL 2.5 MG/2 ML (0.083%) INHALATION SOLUTION) [Concomitant]
  6. TRIAMCINOLONE NASAL (TRIAMCINOLONE 55 MCG/INH NASAL SPRAY) [Concomitant]
  7. METHYLPHENIDATE (METHYLPHENIDATE 10 MG ORAL TABLET) [Concomitant]
  8. MUPIROCIN TOPICAL (MUPIROCIN 2% TOPICAL CREAM) [Concomitant]
  9. LEVOTHYROXINE (LEVOTHYROXINE 100 MCG (0.1 MG) ORAL TABLET) [Concomitant]
  10. ALBUTEROL (VENTOLIN HFA 90 MCG/INH INHALATION AEROSOL) [Concomitant]

REACTIONS (5)
  - No therapeutic response [None]
  - Cough [None]
  - Wheezing [None]
  - Asthenia [None]
  - Chronic obstructive pulmonary disease [None]

NARRATIVE: CASE EVENT DATE: 20160106
